FAERS Safety Report 12253046 (Version 2)
Quarter: 2016Q2

REPORT INFORMATION
  Report Type: Spontaneous
  Country: US (occurrence: US)
  Receive Date: 20160411
  Receipt Date: 20160616
  Transmission Date: 20160815
  Serious: Yes (Death, Other)
  Sender: FDA-Public Use
  Company Number: US-CTI_01886_2016

PATIENT
  Age: 10 Year
  Sex: Male

DRUGS (21)
  1. AQUADEKS [Concomitant]
     Active Substance: MINERALS\VITAMINS
     Dosage: DRO; DF, UNK
  2. FLORANEX [Concomitant]
     Active Substance: LACTOBACILLUS ACIDOPHILUS\LACTOBACILLUS DELBRUECKII SUBSP. BULGARICUS
     Dosage: DF, UNK
  3. PULMICORT TURBUHALER [Concomitant]
     Active Substance: BUDESONIDE
     Dosage: SUS 0.5 MG/2; DF, UNK
  4. PULMOZYME [Suspect]
     Active Substance: DORNASE ALFA
     Indication: CYSTIC FIBROSIS
     Dosage: 2.5 MG/ 2.5 ML NEB
     Route: 055
     Dates: start: 20150731
  5. PULMOZYME [Concomitant]
     Active Substance: DORNASE ALFA
     Dosage: SOL 1 MG/ML; DF, UNK
  6. CREON [Concomitant]
     Active Substance: PANCRELIPASE AMYLASE\PANCRELIPASE LIPASE\PANCRELIPASE PROTEASE
     Dosage: DF, UNK
  7. CAYSTON [Concomitant]
     Active Substance: AZTREONAM
     Dosage: DF, UNK
     Route: 055
  8. ALBUTEROL. [Concomitant]
     Active Substance: ALBUTEROL
     Dosage: NEB; DF, UNK
  9. ALBUTEROL. [Concomitant]
     Active Substance: ALBUTEROL
     Dosage: NEB; DF, UNK
  10. METHADONE [Concomitant]
     Active Substance: METHADONE HYDROCHLORIDE
     Dosage: SOL 5 MG/ 5 ML; DF, UNK
  11. MORPHINE SUL [Concomitant]
     Dosage: SOL 10 MG/ 5 ML; DF, UNK
  12. REVATIO [Concomitant]
     Active Substance: SILDENAFIL CITRATE
     Dosage: SUS 10 MG/M; DF, UNK
  13. POT CHLORIDE [Concomitant]
     Active Substance: POTASSIUM CHLORIDE
     Dosage: SOL; DF, UNK
  14. SILDENAFIL. [Concomitant]
     Active Substance: SILDENAFIL
     Dosage: DF, UNK
  15. D3 MAX ST [Concomitant]
     Dosage: DRO; DF, UNK
  16. CIPROFLOXACIN. [Concomitant]
     Active Substance: CIPROFLOXACIN
     Dosage: DF, UNK
  17. FLORANEX [Concomitant]
     Active Substance: LACTOBACILLUS ACIDOPHILUS\LACTOBACILLUS DELBRUECKII SUBSP. BULGARICUS
     Dosage: GRA, DF, UNK
  18. SODIUM CHLOR [Concomitant]
     Dosage: NEB; DF, UNK
  19. BETHKIS [Suspect]
     Active Substance: TOBRAMYCIN
     Indication: CYSTIC FIBROSIS
     Dosage: 300 MG/ 4 ML AMP
     Route: 055
     Dates: start: 20150821
  20. BUDESONIDE. [Concomitant]
     Active Substance: BUDESONIDE
     Dosage: SUS, 0.5 MG/2; DF, UNK
  21. CREON [Concomitant]
     Active Substance: PANCRELIPASE AMYLASE\PANCRELIPASE LIPASE\PANCRELIPASE PROTEASE
     Dosage: DF, UNK

REACTIONS (1)
  - Condition aggravated [Fatal]

NARRATIVE: CASE EVENT DATE: 201601
